FAERS Safety Report 6916314-7 (Version None)
Quarter: 2010Q3

REPORT INFORMATION
  Report Type: 
  Country: None (occurrence: None)
  Receive Date: 20100810
  Receipt Date: 20100730
  Transmission Date: 20110219
  Serious: Yes (Hospitalization)
  Sender: FDA-Public Use
  Company Number: US-PFIZER INC-2010030600

PATIENT
  Sex: Female
  Weight: 78.2 kg

DRUGS (8)
  1. SUNITINIB MALATE [Suspect]
     Indication: MALIGNANT NEOPLASM OF ISLETS OF LANGERHANS
     Dosage: 25 MG, 1X/DAY
     Route: 048
     Dates: start: 20090408, end: 20100307
  2. OXYCODONE [Suspect]
     Indication: PAIN
     Dosage: 5-10 MG, Q4HOURS PRN
     Route: 048
     Dates: start: 20090125
  3. OXYCONTIN [Suspect]
     Indication: PAIN
     Dosage: 60 MG, Q12HOURS
     Route: 048
     Dates: start: 20080901
  4. SANDOSTATIN [Concomitant]
     Indication: NEOPLASM PROPHYLAXIS
     Dosage: 20 MG, MONTHLY
     Route: 030
     Dates: start: 20080702
  5. RITALIN [Concomitant]
     Indication: FATIGUE
     Dosage: 5 MG, AT 08:00 AND 12:00
     Route: 048
     Dates: start: 20090325
  6. CITALOPRAM [Concomitant]
     Indication: DEPRESSION
     Dosage: 20 MG, 1X/DAY
     Route: 048
     Dates: start: 20090710
  7. NORVASC [Concomitant]
     Indication: HYPERTENSION
     Dosage: 5 MG, 1X/DAY
     Route: 048
     Dates: start: 20090623
  8. PREVACID [Concomitant]
     Indication: NAUSEA
     Dosage: 30 MG, 1X/DAY
     Route: 048
     Dates: start: 20090617

REACTIONS (1)
  - MENTAL STATUS CHANGES [None]
